FAERS Safety Report 5847495-4 (Version None)
Quarter: 2008Q3

REPORT INFORMATION
  Report Type: 
  Country: None (occurrence: None)
  Receive Date: 20080814
  Receipt Date: 20080804
  Transmission Date: 20090109
  Serious: Yes (Hospitalization, Other)
  Sender: FDA-Public Use
  Company Number: 2008AP001887

PATIENT
  Age: 84 Year
  Sex: Male

DRUGS (4)
  1. CARVEDILOL [Suspect]
     Dosage: 6.25 MG; ;PO
     Route: 048
  2. SIMVASTATIN [Suspect]
     Dosage: 20 MG;
  3. DONEPEZIL HCL [Concomitant]
  4. LISINOPRIL [Concomitant]

REACTIONS (6)
  - BRADYCARDIA [None]
  - HYPOTENSION [None]
  - INTENTIONAL OVERDOSE [None]
  - NODAL RHYTHM [None]
  - PALLOR [None]
  - VOMITING [None]
